FAERS Safety Report 7167544-3 (Version None)
Quarter: 2010Q4

REPORT INFORMATION
  Report Type: 
  Country: None (occurrence: None)
  Receive Date: 20101216
  Receipt Date: 20100322
  Transmission Date: 20110411
  Serious: No
  Sender: FDA-Public Use
  Company Number: A0851313A

PATIENT
  Age: 40 Year
  Sex: Female

DRUGS (1)
  1. NICOTINE POLACRILEX [Suspect]
     Dates: end: 20100322

REACTIONS (3)
  - RETCHING [None]
  - VOMITING [None]
  - WEIGHT DECREASED [None]
